FAERS Safety Report 8759838 (Version 1)
Quarter: 2012Q4

REPORT INFORMATION
  Report Type: 
  Country: US (occurrence: US)
  Receive Date: 20120829
  Receipt Date: 20120829
  Transmission Date: 20130627
  Serious: Yes (Hospitalization)
  Sender: FDA-Public Use
  Company Number: US-ASTRAZENECA-2012SE60935

PATIENT
  Age: 55 Year
  Sex: Female

DRUGS (2)
  1. TOPROL XL [Suspect]
     Route: 048
  2. NEXIUM [Concomitant]
     Route: 048

REACTIONS (1)
  - Chest pain [Unknown]
